FAERS Safety Report 6134217-5 (Version None)
Quarter: 2009Q1

REPORT INFORMATION
  Report Type: 
  Country: None (occurrence: None)
  Receive Date: 20090326
  Receipt Date: 20090311
  Transmission Date: 20090719
  Serious: Yes (Hospitalization, Other)
  Sender: FDA-Public Use
  Company Number: US-PFIZER INC-2008099194

PATIENT
  Sex: Male
  Weight: 72.7 kg

DRUGS (10)
  1. SUNITINIB MALATE [Suspect]
     Indication: LUNG NEOPLASM MALIGNANT
     Dosage: 50 MG, 1X/DAY
     Route: 048
     Dates: start: 20070918, end: 20081118
  2. MORPHINE [Concomitant]
     Route: 048
     Dates: start: 20030101
  3. BUPROPION HCL [Concomitant]
     Route: 048
     Dates: start: 20060509
  4. FOSINOPRIL [Concomitant]
     Route: 048
     Dates: start: 20000101
  5. VICOPROFEN [Concomitant]
     Route: 048
     Dates: start: 20060509
  6. LORTAB [Concomitant]
     Route: 048
     Dates: start: 20050710
  7. OXYCODONE HCL [Concomitant]
     Route: 048
     Dates: start: 20061215
  8. CHANTIX [Concomitant]
     Route: 048
     Dates: start: 20070601
  9. LOVAZA [Concomitant]
     Route: 048
     Dates: start: 20071201
  10. ZANTAC [Concomitant]
     Route: 048
     Dates: start: 20080101

REACTIONS (1)
  - HYPOTHYROIDISM [None]
